FAERS Safety Report 11115033 (Version 1)
Quarter: 2015Q2

REPORT INFORMATION
  Report Type: Spontaneous
  Country: JP (occurrence: JP)
  Receive Date: 20150515
  Receipt Date: 20150515
  Transmission Date: 20150821
  Serious: Yes (Other)
  Sender: FDA-Public Use
  Company Number: JP-BRISTOL-MYERS SQUIBB COMPANY-BMS-2015-022861

PATIENT
  Age: 60 Year
  Sex: Male

DRUGS (11)
  1. DOCETAXEL. [Concomitant]
     Active Substance: DOCETAXEL
     Indication: SQUAMOUS CELL CARCINOMA OF HEAD AND NECK
     Dosage: 75 MG/M2, Q3WK
     Route: 041
     Dates: start: 20141222, end: 20141222
  2. DOCETAXEL. [Concomitant]
     Active Substance: DOCETAXEL
     Dosage: 75 MG/M2, Q3WK
     Route: 041
     Dates: start: 20150202, end: 20150202
  3. ERBITUX [Suspect]
     Active Substance: CETUXIMAB
     Indication: SQUAMOUS CELL CARCINOMA OF HEAD AND NECK
     Dosage: 400 MG/M2, QWK
     Route: 041
     Dates: start: 20141222, end: 20141222
  4. ERBITUX [Suspect]
     Active Substance: CETUXIMAB
     Dosage: 250 MG/M2, QWK
     Route: 041
     Dates: start: 20141229, end: 20150105
  5. ERBITUX [Suspect]
     Active Substance: CETUXIMAB
     Dosage: 250 MG/M2, QWK
     Route: 041
     Dates: start: 20150112, end: 20150126
  6. ERBITUX [Suspect]
     Active Substance: CETUXIMAB
     Dosage: 250 MG/M2, QWK
     Route: 041
     Dates: start: 20150202, end: 20150223
  7. ERBITUX [Suspect]
     Active Substance: CETUXIMAB
     Dosage: 250 MG/M2, QWK
     Route: 041
     Dates: start: 20150302, end: 20150413
  8. CISPLATIN. [Concomitant]
     Active Substance: CISPLATIN
     Indication: SQUAMOUS CELL CARCINOMA OF HEAD AND NECK
     Dosage: 75 MG/M2, Q3WK
     Route: 041
     Dates: start: 20141222, end: 20141222
  9. CISPLATIN. [Concomitant]
     Active Substance: CISPLATIN
     Dosage: 75 MG/M2, Q3WK
     Route: 041
     Dates: start: 20150112, end: 20150112
  10. DOCETAXEL. [Concomitant]
     Active Substance: DOCETAXEL
     Dosage: 75 MG/M2, Q3WK
     Route: 041
     Dates: start: 20150112, end: 20150112
  11. CISPLATIN. [Concomitant]
     Active Substance: CISPLATIN
     Dosage: 75 MG/M2, QWK
     Route: 041
     Dates: start: 20150202, end: 20150202

REACTIONS (14)
  - Skin reaction [Unknown]
  - Dysphagia [Unknown]
  - Vomiting [Unknown]
  - Pharyngeal inflammation [Unknown]
  - Oedema [Unknown]
  - Alopecia [Unknown]
  - Stomatitis [Unknown]
  - Dysgeusia [Unknown]
  - Dermatitis acneiform [Unknown]
  - Decreased appetite [Unknown]
  - Dry mouth [Unknown]
  - Laryngeal oedema [Unknown]
  - Radiation skin injury [Unknown]
  - Paronychia [Unknown]
